FAERS Safety Report 7693567-1 (Version None)
Quarter: 2011Q3

REPORT INFORMATION
  Report Type: 
  Country: None (occurrence: None)
  Receive Date: 20110819
  Receipt Date: 20110811
  Transmission Date: 20111222
  Serious: Yes (Death, Other)
  Sender: FDA-Public Use
  Company Number: PHHY2011JP65548

PATIENT
  Age: 7 Month
  Sex: Female

DRUGS (6)
  1. ETOPOSIDE [Suspect]
     Indication: ACUTE MYELOID LEUKAEMIA
     Dosage: 150 MG/M2, UNK
  2. CYTARABINE [Suspect]
     Indication: ACUTE MYELOID LEUKAEMIA
     Dosage: 2000 MG/M2, UNK
  3. METHOTREXATE [Suspect]
     Indication: ACUTE MYELOID LEUKAEMIA
     Dosage: 3 MG, UNK
     Route: 039
  4. MITOXANTRONE [Suspect]
     Indication: ACUTE MYELOID LEUKAEMIA
     Dosage: 5 UG/M2, UNK
  5. HYDROCORTISONE [Suspect]
     Indication: ACUTE MYELOID LEUKAEMIA
     Dosage: 10 MG, UNK
  6. CYCLOSPORINE [Suspect]
     Indication: HISTIOCYTOSIS HAEMATOPHAGIC

REACTIONS (17)
  - ACUTE RESPIRATORY DISTRESS SYNDROME [None]
  - HYPERBILIRUBINAEMIA [None]
  - JAUNDICE [None]
  - LUNG DISORDER [None]
  - PYREXIA [None]
  - GASTROINTESTINAL HAEMORRHAGE [None]
  - BILE OUTPUT ABNORMAL [None]
  - DYSPNOEA [None]
  - PULMONARY HAEMORRHAGE [None]
  - FEBRILE NEUTROPENIA [None]
  - LYMPHOHISTIOCYTOSIS [None]
  - RESPIRATORY FAILURE [None]
  - BLOOD LACTATE DEHYDROGENASE ABNORMAL [None]
  - SHOCK [None]
  - ILEUS [None]
  - ABDOMINAL DISTENSION [None]
  - DISSEMINATED INTRAVASCULAR COAGULATION [None]
